FAERS Safety Report 21375682 (Version 2)
Quarter: 2023Q1

REPORT INFORMATION
  Report Type: Report from Study
  Country: EG (occurrence: EG)
  Receive Date: 20220926
  Receipt Date: 20230114
  Transmission Date: 20230417
  Serious: Yes (Other)
  Sender: FDA-Public Use
  Company Number: EG-NOVARTISPH-NVSC2022EG191483

PATIENT
  Age: 23 Year
  Sex: Male

DRUGS (5)
  1. GILENYA [Suspect]
     Active Substance: FINGOLIMOD HYDROCHLORIDE
     Indication: Multiple sclerosis
     Dosage: 0.5 MG, QD, (STARTED IN FEB OR MAR 2022)
     Route: 048
  2. GILENYA [Suspect]
     Active Substance: FINGOLIMOD HYDROCHLORIDE
     Dosage: 0.5 MG, QD
     Route: 048
     Dates: start: 202204
  3. GILENYA [Suspect]
     Active Substance: FINGOLIMOD HYDROCHLORIDE
     Dosage: 0.5 MG, QOD
     Route: 048
     Dates: start: 20220812
  4. OMEGA 3 [Concomitant]
     Active Substance: CAPSAICIN
     Indication: Vitamin supplementation
     Dosage: UNK, QD, (STARTED IN FEB OR MAR 2022)
     Route: 048
  5. VITAMIN D [Concomitant]
     Active Substance: VITAMIN D NOS
     Indication: Vitamin supplementation
     Dosage: UNK, QD, (STARTED IN FEB OR MAR 2022)
     Route: 048

REACTIONS (5)
  - Hepatic enzyme increased [Unknown]
  - Immunodeficiency [Unknown]
  - Full blood count abnormal [Unknown]
  - Mean cell haemoglobin decreased [Unknown]
  - Mean cell volume decreased [Unknown]

NARRATIVE: CASE EVENT DATE: 20220718
